FAERS Safety Report 5891454-2 (Version None)
Quarter: 2008Q3

REPORT INFORMATION
  Report Type: 
  Country: None (occurrence: None)
  Receive Date: 20080922
  Receipt Date: 20080804
  Transmission Date: 20090109
  Serious: Yes (Hospitalization, Other)
  Sender: FDA-Public Use
  Company Number: US-PURDUE-USA_2008_0034705

PATIENT
  Sex: Male

DRUGS (3)
  1. OXYCONTIN [Suspect]
     Indication: PAIN
     Dosage: 80 MG, QID
     Route: 048
     Dates: start: 20000801, end: 20021001
  2. LEVOTHYROXINE SODIUM [Concomitant]
     Indication: DRUG USE FOR UNKNOWN INDICATION
     Dosage: .15 MG, DAILY
     Route: 048
  3. FELODIPINE [Concomitant]
     Indication: DRUG USE FOR UNKNOWN INDICATION
     Dosage: 5 MG, DAILY
     Route: 048

REACTIONS (5)
  - ANXIETY [None]
  - CARDIO-RESPIRATORY ARREST [None]
  - DETOXIFICATION [None]
  - LETHARGY [None]
  - LOSS OF CONSCIOUSNESS [None]
